FAERS Safety Report 7261810-9 (Version None)
Quarter: 2011Q1

REPORT INFORMATION
  Report Type: 
  Country: None (occurrence: None)
  Receive Date: 20110124
  Receipt Date: 20110124
  Transmission Date: 20110831
  Serious: Yes (Other)
  Sender: FDA-Public Use
  Company Number: None

PATIENT
  Sex: Female
  Weight: 56.6996 kg

DRUGS (2)
  1. INDIVID. WRAPPED ALCOHOL SWAB DNA WALGREEN [Suspect]
     Indication: THERAPEUTIC SKIN CARE TOPICAL
     Dosage: 1X/DAY 1X/DAY TOP
     Route: 061
     Dates: start: 20100503, end: 20110117
  2. INDIVID. WRAPPED ALCOHOL WIPE DNA TRIAD [Suspect]
     Dosage: 1X/DAY 1X/DAY TOP
     Route: 061

REACTIONS (4)
  - INJECTION SITE PAIN [None]
  - INJECTION SITE ERYTHEMA [None]
  - PRODUCT QUALITY ISSUE [None]
  - INFECTION [None]
